FAERS Safety Report 7496137-3 (Version None)
Quarter: 2011Q2

REPORT INFORMATION
  Report Type: 
  Country: None (occurrence: None)
  Receive Date: 20110513
  Receipt Date: 20110502
  Transmission Date: 20111010
  Serious: Yes (Other)
  Sender: FDA-Public Use
  Company Number: 907343

PATIENT
  Age: 58 Year
  Sex: Female

DRUGS (1)
  1. LIDOCAINE HYDROCHLORIDE [Suspect]
     Indication: ORAL PAIN
     Dosage: TOPICAL
     Route: 061

REACTIONS (2)
  - DEVICE COMPONENT ISSUE [None]
  - FOREIGN BODY [None]
